FAERS Safety Report 21350646 (Version 1)
Quarter: 2022Q3

REPORT INFORMATION
  Report Type: Spontaneous
  Country: US (occurrence: None)
  Receive Date: 20220919
  Receipt Date: 20220919
  Transmission Date: 20221026
  Serious: Yes (Other)
  Sender: FDA-Public Use
  Company Number: None

PATIENT
  Age: 23 Year
  Sex: Female
  Weight: 63 kg

DRUGS (4)
  1. DAYVIGO [Suspect]
     Active Substance: LEMBOREXANT
     Indication: Sleep disorder
  2. LAMICTAL [Concomitant]
     Active Substance: LAMOTRIGINE
  3. ADDERALL [Concomitant]
     Active Substance: AMPHETAMINE ASPARTATE\AMPHETAMINE SULFATE\DEXTROAMPHETAMINE SACCHARATE\DEXTROAMPHETAMINE SULFATE
  4. IRON [Concomitant]
     Active Substance: IRON

REACTIONS (2)
  - Head titubation [None]
  - Musculoskeletal disorder [None]

NARRATIVE: CASE EVENT DATE: 20220917
